FAERS Safety Report 6349274-0 (Version None)
Quarter: 2009Q3

REPORT INFORMATION
  Report Type: 
  Country: None (occurrence: None)
  Receive Date: 20090911
  Receipt Date: 20090908
  Transmission Date: 20100115
  Serious: Yes (Other)
  Sender: FDA-Public Use
  Company Number: A0806432A

PATIENT
  Age: 8 Year
  Sex: Male

DRUGS (2)
  1. FLOVENT [Suspect]
     Indication: DRUG USE FOR UNKNOWN INDICATION
     Dosage: 250MCG EIGHT TIMES PER DAY
     Route: 055
  2. SALBUTAMOL [Concomitant]
     Route: 055

REACTIONS (2)
  - HALLUCINATION [None]
  - INSOMNIA [None]
